FAERS Safety Report 7655901-8 (Version None)
Quarter: 2011Q3

REPORT INFORMATION
  Report Type: 
  Country: None (occurrence: None)
  Receive Date: 20110804
  Receipt Date: 20110804
  Transmission Date: 20111222
  Serious: Yes (Disabling)
  Sender: FDA-Public Use
  Company Number: None

PATIENT
  Age: 72 Year
  Sex: Male
  Weight: 99.79 kg

DRUGS (13)
  1. VANCOMYCIN [Concomitant]
  2. GATIFLOXACIN 0.3% [Concomitant]
  3. VANCOMYCIN [Concomitant]
  4. DUOVISC [Concomitant]
  5. LIDOCAINE [Suspect]
     Indication: ANAESTHESIA
     Dosage: 1-10 ML
     Route: 047
     Dates: start: 20110713, end: 20110713
  6. BROMFENAC SODIUM [Concomitant]
  7. BALANCED SALT IRRIGATION [Concomitant]
  8. TIMOPIC 0.5% [Concomitant]
  9. POVODONE IODINE PAINT SOLN [Concomitant]
  10. PROPARACAINE HCL [Concomitant]
     Indication: ANAESTHESIA
     Dosage: ONE DROP
     Route: 047
     Dates: start: 20110713, end: 20110713
  11. CYCLOPENTOLATE-PHENYLEPHINE/TROPICAMIDE [Concomitant]
  12. LIDOCAINE [Concomitant]
  13. PREDNISOLONE 1% SUSPENSION [Concomitant]

REACTIONS (1)
  - TOXIC ANTERIOR SEGMENT SYNDROME [None]
